FAERS Safety Report 25808998 (Version 1)
Quarter: 2025Q3

REPORT INFORMATION
  Report Type: Report from Study
  Country: US (occurrence: US)
  Receive Date: 20250916
  Receipt Date: 20250916
  Transmission Date: 20251020
  Serious: Yes (Other)
  Sender: MALLINCKRODT
  Company Number: US-MALLINCKRODT-MNK202405621

PATIENT
  Age: 67 Year
  Sex: Female

DRUGS (7)
  1. CORTICOTROPIN [Suspect]
     Active Substance: CORTICOTROPIN
     Indication: Pemphigoid
     Dosage: 80 UNITS
     Dates: start: 20240613
  2. CORTICOTROPIN [Suspect]
     Active Substance: CORTICOTROPIN
     Indication: Corneal disorder
     Dosage: 80 UNITS
     Route: 058
     Dates: start: 202502
  3. MYCOPHENOLIC ACID [Suspect]
     Active Substance: MYCOPHENOLIC ACID
     Indication: Product used for unknown indication
  4. OXERVATE [Concomitant]
     Active Substance: CENEGERMIN-BKBJ
  5. RITUXAN [Concomitant]
     Active Substance: RITUXIMAB
  6. DOXYCYCLINE [Concomitant]
     Active Substance: DOXYCYCLINE
  7. POTASSIUM CHLORIDE [Concomitant]
     Active Substance: POTASSIUM CHLORIDE

REACTIONS (9)
  - Corneal disorder [Not Recovered/Not Resolved]
  - Hysterectomy [Unknown]
  - Heart rate increased [Not Recovered/Not Resolved]
  - Blood pressure fluctuation [Recovering/Resolving]
  - Eye ulcer [Recovered/Resolved]
  - Blood calcium decreased [Unknown]
  - Eye pruritus [Unknown]
  - Oedema [Not Recovered/Not Resolved]
  - Rash erythematous [Unknown]

NARRATIVE: CASE EVENT DATE: 20240101
